FAERS Safety Report 7499917-3 (Version None)
Quarter: 2011Q2

REPORT INFORMATION
  Report Type: 
  Country: None (occurrence: None)
  Receive Date: 20110517
  Receipt Date: 20110426
  Transmission Date: 20111010
  Serious: Yes (Hospitalization)
  Sender: FDA-Public Use
  Company Number: 2008AP03972

PATIENT
  Age: 58 Year
  Sex: Male

DRUGS (25)
  1. NORVIR [Suspect]
     Dosage: 100 MG QD ORAL FORMULATION: CAPSULE
     Route: 048
     Dates: start: 20070718
  2. EFAVIRENZ [Concomitant]
  3. REYATAZ [Suspect]
     Dosage: 300 MG QD ORAL FORMULATION: CAPSULE
     Route: 048
     Dates: start: 20070718
  4. PREDNISOLONE [Concomitant]
  5. ZITHROMAX [Suspect]
     Indication: ANTIBIOTIC PROPHYLAXIS
     Dosage: 600 MG QD ORAL FORMULATION: TABLET / 600 MG WEEK ORAL FORMULATION: TABLET
     Route: 048
     Dates: start: 20070612, end: 20080331
  6. ZITHROMAX [Suspect]
     Indication: OPPORTUNISTIC INFECTION PROPHYLAXIS
     Dosage: 600 MG QD ORAL FORMULATION: TABLET / 600 MG WEEK ORAL FORMULATION: TABLET
     Route: 048
     Dates: start: 20070612, end: 20080331
  7. ZITHROMAX [Suspect]
     Indication: ANTIBIOTIC PROPHYLAXIS
     Dosage: 600 MG QD ORAL FORMULATION: TABLET / 600 MG WEEK ORAL FORMULATION: TABLET
     Route: 048
     Dates: start: 20070207, end: 20070530
  8. ZITHROMAX [Suspect]
     Indication: OPPORTUNISTIC INFECTION PROPHYLAXIS
     Dosage: 600 MG QD ORAL FORMULATION: TABLET / 600 MG WEEK ORAL FORMULATION: TABLET
     Route: 048
     Dates: start: 20070207, end: 20070530
  9. POLARAMINE [Concomitant]
  10. FOSCAVIR [Suspect]
     Indication: CYTOMEGALOVIRUS ENTEROCOLITIS
     Dosage: SEE IMAGE
     Route: 042
     Dates: start: 20070626, end: 20070710
  11. FOSCAVIR [Suspect]
     Indication: CYTOMEGALOVIRUS VIRAEMIA
     Dosage: SEE IMAGE
     Route: 042
     Dates: start: 20070626, end: 20070710
  12. FOSCAVIR [Suspect]
     Indication: CYTOMEGALOVIRUS TEST POSITIVE
     Dosage: SEE IMAGE
     Route: 042
     Dates: start: 20070626, end: 20070710
  13. FOSCAVIR [Suspect]
     Indication: CYTOMEGALOVIRUS ENTEROCOLITIS
     Dosage: SEE IMAGE
     Route: 042
     Dates: start: 20070508, end: 20070610
  14. FOSCAVIR [Suspect]
     Indication: CYTOMEGALOVIRUS VIRAEMIA
     Dosage: SEE IMAGE
     Route: 042
     Dates: start: 20070508, end: 20070610
  15. FOSCAVIR [Suspect]
     Indication: CYTOMEGALOVIRUS TEST POSITIVE
     Dosage: SEE IMAGE
     Route: 042
     Dates: start: 20070508, end: 20070610
  16. FOSCAVIR [Suspect]
     Indication: CYTOMEGALOVIRUS ENTEROCOLITIS
     Dosage: SEE IMAGE
     Route: 042
     Dates: start: 20070401, end: 20070507
  17. FOSCAVIR [Suspect]
     Indication: CYTOMEGALOVIRUS VIRAEMIA
     Dosage: SEE IMAGE
     Route: 042
     Dates: start: 20070401, end: 20070507
  18. FOSCAVIR [Suspect]
     Indication: CYTOMEGALOVIRUS TEST POSITIVE
     Dosage: SEE IMAGE
     Route: 042
     Dates: start: 20070401, end: 20070507
  19. FOSCAVIR [Suspect]
     Indication: CYTOMEGALOVIRUS ENTEROCOLITIS
     Dosage: SEE IMAGE
     Route: 042
     Dates: start: 20070311, end: 20070331
  20. FOSCAVIR [Suspect]
     Indication: CYTOMEGALOVIRUS VIRAEMIA
     Dosage: SEE IMAGE
     Route: 042
     Dates: start: 20070311, end: 20070331
  21. FOSCAVIR [Suspect]
     Indication: CYTOMEGALOVIRUS TEST POSITIVE
     Dosage: SEE IMAGE
     Route: 042
     Dates: start: 20070311, end: 20070331
  22. TRUVADA [Suspect]
     Dosage: 1 DF QOD ORAL FORMULATION: TABLET
     Route: 048
     Dates: start: 20070718
  23. EPZICOM [Concomitant]
  24. ITRACONAZOLE [Concomitant]
  25. (MICAFUNGIN SODIUM) [Concomitant]

REACTIONS (10)
  - GLAUCOMA [None]
  - CYTOMEGALOVIRUS TEST POSITIVE [None]
  - ERYTHEMA [None]
  - DRUG ERUPTION [None]
  - HYPOKALAEMIA [None]
  - HYPONATRAEMIA [None]
  - RENAL IMPAIRMENT [None]
  - UVEITIS [None]
  - BLOOD BILIRUBIN INCREASED [None]
  - ASTHENOPIA [None]
